FAERS Safety Report 7068536-5 (Version None)
Quarter: 2010Q4

REPORT INFORMATION
  Report Type: 
  Country: None (occurrence: None)
  Receive Date: 20101027
  Receipt Date: 20101027
  Transmission Date: 20110411
  Serious: Yes (Other)
  Sender: FDA-Public Use
  Company Number: None

PATIENT
  Age: 3 Year
  Sex: Male
  Weight: 15.8759 kg

DRUGS (1)
  1. CHILDREN'S IBUPROFEN [Suspect]
     Indication: PYREXIA
     Dosage: 5 ML EVERY 12 HRS PO
     Route: 048
     Dates: start: 20100828, end: 20100829

REACTIONS (2)
  - GASTRIC HAEMORRHAGE [None]
  - PYREXIA [None]
